FAERS Safety Report 23881881 (Version 3)
Quarter: 2024Q3

REPORT INFORMATION
  Report Type: Spontaneous
  Country: US (occurrence: US)
  Receive Date: 20240521
  Receipt Date: 20240701
  Transmission Date: 20241016
  Serious: Yes (Hospitalization)
  Sender: STEMLINE THERAPEUTICS
  Company Number: US-Stemline Therapeutics, Inc.-2024ST002709

PATIENT
  Age: 40 Year
  Sex: Female
  Weight: 101.7 kg

DRUGS (9)
  1. ORSERDU [Suspect]
     Active Substance: ELACESTRANT
     Indication: Breast cancer metastatic
     Route: 048
     Dates: start: 20240315, end: 20240520
  2. tucatanib [Concomitant]
     Indication: Breast cancer metastatic
     Dosage: ORAL 300MGBID
     Route: 048
     Dates: start: 20240528
  3. XELODA [Concomitant]
     Active Substance: CAPECITABINE
     Indication: Breast cancer metastatic
     Dosage: 2000MG BID 14 DAYS ON 7 OFF
     Route: 048
     Dates: start: 20240528
  4. XELODA [Concomitant]
     Active Substance: CAPECITABINE
     Indication: Breast cancer metastatic
  5. XELODA [Concomitant]
     Active Substance: CAPECITABINE
     Indication: Breast cancer metastatic
  6. ZEJULA [Concomitant]
     Active Substance: NIRAPARIB
     Indication: Breast cancer metastatic
     Dosage: ORAL ONCE DAILY
     Dates: start: 20240315, end: 20240520
  7. MEKINIST [Concomitant]
     Active Substance: TRAMETINIB DIMETHYL SULFOXIDE
     Indication: Breast cancer metastatic
     Dosage: ORAL ONCE DAILY
     Dates: start: 20240315, end: 20240520
  8. BICALUTAMIDE [Concomitant]
     Active Substance: BICALUTAMIDE
     Indication: Breast cancer metastatic
     Dosage: 150MG ONCE DAILY
     Dates: start: 20240315
  9. HERCEPTIN [Concomitant]
     Active Substance: TRASTUZUMAB
     Indication: Breast cancer metastatic
     Dosage: IV Q3WK
     Dates: start: 20240315

REACTIONS (10)
  - Drug interaction [Unknown]
  - Gallbladder injury [Recovered/Resolved]
  - Platelet count decreased [Recovered/Resolved]
  - Hepatic enzyme increased [Recovered/Resolved]
  - Muscle spasms [Recovering/Resolving]
  - Hypertension [Not Recovered/Not Resolved]
  - Spinal column injury [Unknown]
  - Hepatic lesion [Not Recovered/Not Resolved]
  - Diarrhoea [Not Recovered/Not Resolved]
  - Abdominal discomfort [Not Recovered/Not Resolved]

NARRATIVE: CASE EVENT DATE: 20240318
